FAERS Safety Report 5744061-6 (Version None)
Quarter: 2008Q2

REPORT INFORMATION
  Report Type: 
  Country: None (occurrence: None)
  Receive Date: 20080516
  Receipt Date: 20080516
  Transmission Date: 20081010
  Serious: Yes (Hospitalization)
  Sender: FDA-Public Use
  Company Number: None

PATIENT
  Age: 69 Year
  Sex: Female
  Weight: 74.8 kg

DRUGS (5)
  1. PEG-INTRON [Suspect]
     Indication: HEREDITARY HAEMORRHAGIC TELANGIECTASIA
     Dosage: 80 MCG SQ WEEKLY
     Route: 058
  2. AMOXICILLIN [Concomitant]
  3. ALTACE [Concomitant]
  4. NU-IRON PLUS [Concomitant]
  5. TYLENOL ES RAPID RELEASE [Concomitant]

REACTIONS (2)
  - BRONCHITIS [None]
  - SINUSITIS [None]
